FAERS Safety Report 5479290-2 (Version None)
Quarter: 2007Q4

REPORT INFORMATION
  Report Type: 
  Country: None (occurrence: None)
  Receive Date: 20071008
  Receipt Date: 20071003
  Transmission Date: 20080405
  Serious: Yes (Death, Other)
  Sender: FDA-Public Use
  Company Number: PHFR2007GB02871

PATIENT
  Age: 45 Year
  Sex: Female

DRUGS (16)
  1. CYCLOSPORINE [Suspect]
     Indication: RENAL TRANSPLANT
     Dosage: UNK, UNK
     Route: 048
     Dates: start: 19880212
  2. PREDNISOLONE [Concomitant]
     Dosage: 75 MG, QD
     Route: 065
     Dates: start: 19880212
  3. ALLOPURINOL [Concomitant]
     Dosage: 100MG / DAY
     Route: 065
  4. ACETYLSALICYLIC ACID [Concomitant]
     Dosage: 75 MG, QD
     Route: 065
  5. CALCICHEW-D3 MITE [Concomitant]
     Dosage: {2 TABS / DAY
     Route: 065
  6. CO-CODAMOL [Concomitant]
     Dosage: 8MG / 500MG, PRN
     Route: 065
  7. DIHYDROCODEINE BITARTRATE INJ [Concomitant]
     Dosage: 2 TABS, TID
     Route: 065
  8. ENALAPRIL MALEATE [Concomitant]
     Dosage: 5 MG, BID
     Route: 065
  9. EPOGEN [Concomitant]
     Dosage: 2000 IU, TIW
     Route: 065
  10. FERROUS GLUCONATE [Concomitant]
     Dosage: 300 MG, TID
     Route: 065
  11. FRUSEMIDE [Concomitant]
     Dosage: 80 MG, QD
     Route: 065
  12. NEORAL [Suspect]
     Indication: RENAL TRANSPLANT
     Dosage: 100 MG, BID
     Route: 065
  13. NEORAL [Suspect]
     Dosage: 125 MG, BID
     Route: 065
  14. RANITIDINE HCL [Concomitant]
     Dosage: 150 MG, QD
     Route: 065
  15. SIMVASTATIN [Concomitant]
     Dosage: 20 MG, QD
     Route: 065
  16. TRAMADOL HCL [Concomitant]
     Dosage: 50 MG, BID
     Route: 065

REACTIONS (2)
  - DEATH [None]
  - KAPOSI'S SARCOMA [None]
